FAERS Safety Report 22240320 (Version 1)
Quarter: 2023Q2

REPORT INFORMATION
  Report Type: Spontaneous
  Country: US (occurrence: None)
  Receive Date: 20230421
  Receipt Date: 20230421
  Transmission Date: 20230721
  Serious: Yes (unspecified)
  Sender: FDA-Public Use
  Company Number: None

PATIENT
  Age: 64 Year
  Sex: Female
  Weight: 69.75 kg

DRUGS (20)
  1. CLARITIN-D 24 HOUR [Suspect]
     Active Substance: LORATADINE\PSEUDOEPHEDRINE SULFATE
     Indication: Hypersensitivity
     Dosage: OTHER QUANTITY : 1 TABLET(S);?FREQUENCY : DAILY;?
     Route: 048
  2. CLARITIN-D 24 HOUR [Suspect]
     Active Substance: LORATADINE\PSEUDOEPHEDRINE SULFATE
     Indication: Hypersensitivity
  3. CLARITIN-D 24 HOUR [Suspect]
     Active Substance: LORATADINE\PSEUDOEPHEDRINE SULFATE
     Indication: Asthma
  4. WARFARIN [Concomitant]
     Active Substance: WARFARIN
  5. VASOTEC [Concomitant]
     Active Substance: ENALAPRIL MALEATE
  6. TOPROL XL [Concomitant]
     Active Substance: METOPROLOL SUCCINATE
  7. REQUIP [Concomitant]
     Active Substance: ROPINIROLE HYDROCHLORIDE
  8. AMBIEN [Concomitant]
     Active Substance: ZOLPIDEM TARTRATE
  9. ULTRAM [Concomitant]
     Active Substance: TRAMADOL HYDROCHLORIDE
  10. FIORICET [Concomitant]
     Active Substance: ACETAMINOPHEN\BUTALBITAL\CAFFEINE
  11. TRULICITY [Concomitant]
     Active Substance: DULAGLUTIDE
  12. AMARYL [Concomitant]
     Active Substance: GLIMEPIRIDE
  13. DOXYCYCLINE [Concomitant]
     Active Substance: DOXYCYCLINE
  14. CLARITIN [Concomitant]
     Active Substance: LORATADINE
  15. VAITAMIN D [Concomitant]
  16. PROBIOTICS NOS [Concomitant]
     Active Substance: PROBIOTICS NOS
  17. BROMELAIN FIBER [Concomitant]
  18. GI DETOX [Concomitant]
  19. BIOCIDIN [Concomitant]
  20. COLOOSTRUM [Concomitant]

REACTIONS (6)
  - Product commingling [None]
  - Oropharyngeal pain [None]
  - Dysphagia [None]
  - Sinus congestion [None]
  - Wrong product administered [None]
  - Product dispensing error [None]

NARRATIVE: CASE EVENT DATE: 20230412
